FAERS Safety Report 19900088 (Version 1)
Quarter: 2021Q3

REPORT INFORMATION
  Report Type: Spontaneous
  Country: US (occurrence: US)
  Receive Date: 20210929
  Receipt Date: 20210929
  Transmission Date: 20211014
  Serious: No
  Sender: FDA-Public Use
  Company Number: US-ASTRAZENECA-2021A730760

PATIENT
  Age: 72 Year
  Sex: Female
  Weight: 72.1 kg

DRUGS (3)
  1. SYMBICORT [Suspect]
     Active Substance: BUDESONIDE\FORMOTEROL FUMARATE DIHYDRATE
     Indication: ASTHMA
     Dosage: 80/4.5MCG 2 PUFFS DAILY IN THE MORNING
     Route: 055
  2. LISINOPRIL. [Concomitant]
     Active Substance: LISINOPRIL
  3. VENTOLIN [Concomitant]
     Active Substance: ALBUTEROL SULFATE

REACTIONS (8)
  - Intentional device misuse [Not Recovered/Not Resolved]
  - Dyspnoea [Not Recovered/Not Resolved]
  - Malaise [Not Recovered/Not Resolved]
  - Wrong technique in device usage process [Unknown]
  - Hypersensitivity [Unknown]
  - Product dose omission issue [Unknown]
  - Product prescribing issue [Not Recovered/Not Resolved]
  - Device delivery system issue [Unknown]

NARRATIVE: CASE EVENT DATE: 20210915
